FAERS Safety Report 16328534 (Version 1)
Quarter: 2019Q2

REPORT INFORMATION
  Report Type: Spontaneous
  Country: US (occurrence: US)
  Receive Date: 20190518
  Receipt Date: 20190518
  Transmission Date: 20190711
  Serious: No
  Sender: FDA-Public Use
  Company Number: US-SHIRE-US201916065

PATIENT
  Sex: Female
  Weight: 62.59 kg

DRUGS (1)
  1. XIIDRA [Suspect]
     Active Substance: LIFITEGRAST
     Indication: DRY EYE
     Dosage: 1 GTT DROPS, 2X/DAY:BID
     Route: 047

REACTIONS (6)
  - Instillation site pain [Recovered/Resolved]
  - Drug ineffective [Recovered/Resolved]
  - Instillation site pruritus [Recovered/Resolved]
  - Instillation site dryness [Recovered/Resolved]
  - Abdominal pain [Recovered/Resolved]
  - Hearing aid user [Recovered/Resolved]
